FAERS Safety Report 19482145 (Version 1)
Quarter: 2021Q2

REPORT INFORMATION
  Report Type: Spontaneous
  Country: US (occurrence: US)
  Receive Date: 20210630
  Receipt Date: 20210630
  Transmission Date: 20210717
  Serious: Yes (Death)
  Sender: FDA-Public Use
  Company Number: None

PATIENT
  Age: 49 Year
  Sex: Female
  Weight: 62.1 kg

DRUGS (5)
  1. VITAMIN B12 [Concomitant]
     Active Substance: CYANOCOBALAMIN
  2. COMPLEX B?100 [Concomitant]
  3. VITAMIN C PLUS ZINC [Concomitant]
  4. VITAMIN E COMPLEX [Concomitant]
  5. SUTENT [Suspect]
     Active Substance: SUNITINIB MALATE
     Indication: NEOPLASM MALIGNANT
     Route: 048
     Dates: start: 20210421, end: 20210519

REACTIONS (1)
  - Lower respiratory tract infection [None]

NARRATIVE: CASE EVENT DATE: 20210519
